FAERS Safety Report 8971709 (Version 1)
Quarter: 2012Q4

REPORT INFORMATION
  Report Type: 
  Country: US (occurrence: US)
  Receive Date: 20121217
  Receipt Date: 20121217
  Transmission Date: 20130627
  Serious: Yes (Other)
  Sender: FDA-Public Use
  Company Number: US-TEVA-375524USA

PATIENT
  Age: 65 Year
  Sex: Female

DRUGS (3)
  1. PACLITAXEL [Suspect]
     Indication: PAPILLARY SEROUS ENDOMETRIAL CARCINOMA
     Route: 041
  2. DOCETAXEL [Suspect]
     Indication: PAPILLARY SEROUS ENDOMETRIAL CARCINOMA
     Route: 065
  3. CARBOPLATIN [Concomitant]
     Indication: PAPILLARY SEROUS ENDOMETRIAL CARCINOMA
     Dosage: AUC 5-6 once every 3 weeks
     Route: 042

REACTIONS (1)
  - Bronchospasm [Recovered/Resolved]
